FAERS Safety Report 4894163-1 (Version None)
Quarter: 2006Q1

REPORT INFORMATION
  Report Type: 
  Country: None (occurrence: None)
  Receive Date: 20060127
  Receipt Date: 20050912
  Transmission Date: 20060701
  Serious: Yes (Hospitalization)
  Sender: FDA-Public Use
  Company Number: US-GLAXOSMITHKLINE-A0573875A

PATIENT
  Sex: Male

DRUGS (5)
  1. WELLBUTRIN [Suspect]
     Dosage: 200MG TWICE PER DAY
     Route: 048
     Dates: start: 19970101
  2. WELLBUTRIN SR [Suspect]
     Indication: DRUG USE FOR UNKNOWN INDICATION
     Dosage: 250MG PER DAY
     Route: 048
     Dates: start: 19980101
  3. KLONOPIN [Concomitant]
  4. VALPROIC ACID [Concomitant]
  5. ATIVAN [Concomitant]

REACTIONS (2)
  - ANXIETY [None]
  - DRUG INEFFECTIVE [None]
